FAERS Safety Report 19080107 (Version 2)
Quarter: 2022Q1

REPORT INFORMATION
  Report Type: Other
  Country: CA (occurrence: CA)
  Receive Date: 20210401
  Receipt Date: 20220131
  Transmission Date: 20220423
  Serious: Yes (Other)
  Sender: FDA-Public Use
  Company Number: CA-CELLTRION INC.-2021CA004286

PATIENT

DRUGS (9)
  1. RITUXIMAB [Suspect]
     Active Substance: RITUXIMAB
     Indication: Rheumatoid arthritis
     Dosage: 1000 MG
     Route: 042
  2. BENADRYL [Concomitant]
     Active Substance: DIPHENHYDRAMINE HYDROCHLORIDE
     Indication: Premedication
     Dosage: 50 MG
     Route: 048
  3. CANDESARTAN [Concomitant]
     Active Substance: CANDESARTAN
  4. LYRICA [Concomitant]
     Active Substance: PREGABALIN
  5. MEDROL [Concomitant]
     Active Substance: METHYLPREDNISOLONE
  6. METHYLPREDNISOLONE SODIUM SUCCINATE [Concomitant]
     Active Substance: METHYLPREDNISOLONE SODIUM SUCCINATE
     Indication: Premedication
     Dosage: 100 MG
     Route: 042
  7. RISEDRONATE SODIUM [Concomitant]
     Active Substance: RISEDRONATE SODIUM
  8. TYLENOL 8 HR ARTHRITIS PAIN [Concomitant]
     Active Substance: ACETAMINOPHEN
  9. VALSARTAN [Concomitant]
     Active Substance: VALSARTAN

REACTIONS (2)
  - Skin laceration [Recovered/Resolved]
  - Urinary tract infection [Recovered/Resolved]
